FAERS Safety Report 4877785-3 (Version None)
Quarter: 2006Q1

REPORT INFORMATION
  Report Type: 
  Country: None (occurrence: None)
  Receive Date: 20060111
  Receipt Date: 20060106
  Transmission Date: 20060701
  Serious: Yes (Hospitalization)
  Sender: FDA-Public Use
  Company Number: FR-MERCK-0601FRA00027

PATIENT
  Age: 49 Year
  Sex: Female

DRUGS (6)
  1. SINGULAIR [Suspect]
     Indication: ASTHMA
     Route: 048
     Dates: start: 20050201, end: 20051020
  2. DESLORATADINE [Suspect]
     Indication: RHINITIS ALLERGIC
     Route: 048
     Dates: start: 20050201, end: 20051020
  3. BUDESONIDE AND FORMOTEROL FUMARATE [Suspect]
     Indication: ASTHMA
     Route: 055
     Dates: start: 20050201, end: 20051020
  4. OMALIZUMAB [Suspect]
     Indication: ASTHMA
     Route: 058
     Dates: start: 20050601, end: 20050905
  5. TERBUTALINE SULFATE [Suspect]
     Indication: ASTHMA
     Route: 048
     Dates: start: 20050101, end: 20051020
  6. AMINOPHYLLINE [Suspect]
     Indication: ASTHMA
     Route: 048
     Dates: start: 20050201, end: 20051020

REACTIONS (1)
  - VENOUS THROMBOSIS LIMB [None]
